FAERS Safety Report 6467923-3 (Version None)
Quarter: 2009Q4

REPORT INFORMATION
  Report Type: 
  Country: None (occurrence: None)
  Receive Date: 20091119
  Receipt Date: 20090904
  Transmission Date: 20100525
  Serious: Yes (Other)
  Sender: FDA-Public Use
  Company Number: WAES 0909USA00734

PATIENT
  Sex: Male

DRUGS (1)
  1. JANUVIA [Suspect]
     Indication: TYPE 2 DIABETES MELLITUS
     Dosage: PO
     Route: 048
     Dates: start: 20090504

REACTIONS (2)
  - PANCREATIC MASS [None]
  - PANCREATITIS [None]
